FAERS Safety Report 25521249 (Version 1)
Quarter: 2025Q3

REPORT INFORMATION
  Report Type: Spontaneous
  Country: EU (occurrence: EU)
  Receive Date: 20250705
  Receipt Date: 20250705
  Transmission Date: 20251020
  Serious: Yes (Hospitalization)
  Sender: REGENERON
  Company Number: EU-ULTRAGENYX PHARMACEUTICAL INC.-IT-UGX-25-01300

PATIENT
  Age: 63 Year
  Sex: Female

DRUGS (1)
  1. EVKEEZA [Suspect]
     Active Substance: EVINACUMAB-DGNB
     Indication: Type IIa hyperlipidaemia

REACTIONS (2)
  - Hospitalisation [Recovered/Resolved]
  - Drug ineffective [Recovering/Resolving]
